FAERS Safety Report 5808827-6 (Version None)
Quarter: 2008Q3

REPORT INFORMATION
  Report Type: 
  Country: None (occurrence: None)
  Receive Date: 20080714
  Receipt Date: 20080708
  Transmission Date: 20090109
  Serious: Yes (Hospitalization)
  Sender: FDA-Public Use
  Company Number: B0528635A

PATIENT
  Age: 59 Year
  Sex: Female
  Weight: 68.4 kg

DRUGS (2)
  1. LAPATINIB [Suspect]
     Dosage: 1250MG PER DAY
     Route: 048
     Dates: start: 20080123
  2. CAPECITABINE [Suspect]
     Route: 048
     Dates: start: 20080123

REACTIONS (2)
  - CHEST PAIN [None]
  - PULMONARY EMBOLISM [None]
